FAERS Safety Report 6658050-0 (Version None)
Quarter: 2010Q1

REPORT INFORMATION
  Report Type: 
  Country: None (occurrence: None)
  Receive Date: 20100322
  Receipt Date: 20090319
  Transmission Date: 20100710
  Serious: Yes (Other)
  Sender: FDA-Public Use
  Company Number: 2009US-21747

PATIENT
  Age: 20 Year
  Sex: Female

DRUGS (2)
  1. ISOTRETINOIN [Suspect]
     Indication: ACNE CYSTIC
     Dosage: 120 MG, QD, ORAL : 120 MG, QD, ORAL
     Route: 048
     Dates: start: 20070501, end: 20071204
  2. ISOTRETINOIN [Suspect]
     Indication: ACNE CYSTIC
     Dosage: 120 MG, QD, ORAL : 120 MG, QD, ORAL
     Route: 048
     Dates: start: 20080923, end: 20090101

REACTIONS (1)
  - BLOOD BILIRUBIN INCREASED [None]
